FAERS Safety Report 25123737 (Version 1)
Quarter: 2025Q1

REPORT INFORMATION
  Report Type: Spontaneous
  Country: US (occurrence: None)
  Receive Date: 20250326
  Receipt Date: 20250326
  Transmission Date: 20250409
  Serious: No
  Sender: FDA-CTU
  Company Number: None

PATIENT
  Age: 82 Year
  Sex: Male
  Weight: 115.67 kg

DRUGS (1)
  1. REZVOGLAR KWIKPEN [Suspect]
     Active Substance: INSULIN GLARGINE-AGLR
     Indication: Diabetes mellitus
     Dosage: OTHER QUANTITY : 68 UNITS;?FREQUENCY : DAILY;?
     Dates: start: 202411, end: 20250313

REACTIONS (1)
  - Rash [None]

NARRATIVE: CASE EVENT DATE: 20250313
